FAERS Safety Report 22102522 (Version 4)
Quarter: 2024Q1

REPORT INFORMATION
  Report Type: Spontaneous
  Country: US (occurrence: US)
  Receive Date: 20230316
  Receipt Date: 20240116
  Transmission Date: 20240410
  Serious: No
  Sender: FDA-Public Use
  Company Number: US-GLAXOSMITHKLINE-US2023AMR037391

PATIENT
  Sex: Female
  Weight: 68 kg

DRUGS (4)
  1. ZEJULA [Suspect]
     Active Substance: NIRAPARIB
     Indication: Fallopian tube cancer
     Dosage: 100 MG, QD
     Dates: start: 20211114
  2. ZEJULA [Suspect]
     Active Substance: NIRAPARIB
     Dosage: 100 MG, QD
     Route: 048
  3. ZEJULA [Suspect]
     Active Substance: NIRAPARIB
     Dosage: 100 MG, QD
     Route: 048
  4. ZEJULA [Suspect]
     Active Substance: NIRAPARIB
     Indication: Fallopian tube cancer
     Dosage: 100 MG, QD
     Dates: start: 20230926

REACTIONS (9)
  - Seasonal allergy [Unknown]
  - Heart rate irregular [Unknown]
  - Influenza [Unknown]
  - Drug intolerance [Unknown]
  - Nasopharyngitis [Unknown]
  - Glomerular filtration rate decreased [Unknown]
  - Intentional underdose [Unknown]
  - Product dispensing error [Unknown]
  - Product dose omission issue [Unknown]
